FAERS Safety Report 6523877-2 (Version None)
Quarter: 2009Q4

REPORT INFORMATION
  Report Type: 
  Country: None (occurrence: None)
  Receive Date: 20091231
  Receipt Date: 20091223
  Transmission Date: 20100525
  Serious: Yes (Other)
  Sender: FDA-Public Use
  Company Number: GB-ABBOTT-08P-167-0469158-00

PATIENT
  Sex: Male

DRUGS (7)
  1. NORVIR [Suspect]
     Indication: DRUG USE FOR UNKNOWN INDICATION
  2. REYATAZ [Suspect]
     Indication: DRUG USE FOR UNKNOWN INDICATION
  3. ABACAVIR SULFATE [Suspect]
     Indication: DRUG USE FOR UNKNOWN INDICATION
  4. TENOFOVIR DISOPROXIL FUMARATE [Suspect]
     Indication: DRUG USE FOR UNKNOWN INDICATION
  5. REYATAZ [Concomitant]
  6. ABACAVIR [Concomitant]
     Indication: DRUG USE FOR UNKNOWN INDICATION
  7. TENOFOVIR [Concomitant]
     Indication: DRUG USE FOR UNKNOWN INDICATION

REACTIONS (1)
  - LOSS OF CONSCIOUSNESS [None]
